FAERS Safety Report 9050309 (Version 4)
Quarter: 2013Q1

REPORT INFORMATION
  Report Type: Spontaneous
  Country: IT (occurrence: IT)
  Receive Date: 20130205
  Receipt Date: 20130225
  Transmission Date: 20140127
  Serious: Yes (Other)
  Sender: FDA-Public Use
  Company Number: PHHY2013IT009478

PATIENT
  Sex: Female

DRUGS (3)
  1. RASILEZ [Suspect]
     Indication: HYPERTENSION
     Dosage: 150 MG, DAILY
     Route: 048
     Dates: start: 20120619
  2. RASILEZ [Suspect]
     Dosage: 150 MG, QOD
     Route: 048
     Dates: end: 20130108
  3. RASILEZ [Suspect]
     Dosage: 150 MG, DAILY
     Route: 048
     Dates: start: 20130109

REACTIONS (3)
  - Dyspnoea [Unknown]
  - Blood pressure abnormal [Unknown]
  - Drug prescribing error [Unknown]
